FAERS Safety Report 8691814 (Version 2)
Quarter: 2012Q4

REPORT INFORMATION
  Report Type: 
  Country: US (occurrence: US)
  Receive Date: 20120730
  Receipt Date: 20120912
  Transmission Date: 20130627
  Serious: Yes (Death, Other)
  Sender: FDA-Public Use
  Company Number: US-PFIZER INC-2012182524

PATIENT
  Age: 51 Year
  Sex: Male

DRUGS (7)
  1. INLYTA [Suspect]
     Indication: RENAL CANCER
     Dosage: 5 mg, 2x/day
     Route: 048
     Dates: start: 20120215, end: 20120511
  2. VITAMIN E [Concomitant]
  3. CALCIUM [Concomitant]
  4. CELEBREX [Concomitant]
  5. IRON [Concomitant]
  6. OXYCONTIN [Concomitant]
  7. OXYCODONE [Concomitant]

REACTIONS (1)
  - Death [Fatal]
